FAERS Safety Report 4903609-1 (Version None)
Quarter: 2006Q1

REPORT INFORMATION
  Report Type: 
  Country: None (occurrence: None)
  Receive Date: 20060203
  Receipt Date: 20060124
  Transmission Date: 20060701
  Serious: Yes (Death, Hospitalization)
  Sender: FDA-Public Use
  Company Number: 2005BI021009

PATIENT
  Age: 53 Year
  Sex: Male
  Weight: 68.0396 kg

DRUGS (5)
  1. AVONEX LYOPHILIZED [Suspect]
     Indication: MULTIPLE SCLEROSIS
     Dosage: 30 UG; QW; IM
     Route: 030
     Dates: start: 19990101, end: 20030801
  2. AVONEX LIQUID [Suspect]
     Indication: MULTIPLE SCLEROSIS
     Dosage: 30 UG; QW; IM
     Route: 030
     Dates: start: 20030801, end: 20050501
  3. AVONEX [Suspect]
     Indication: MULTIPLE SCLEROSIS
     Dosage: IM
     Route: 030
     Dates: start: 20051001, end: 20051001
  4. ASORBIC ACID [Concomitant]
  5. LIORESAL [Concomitant]

REACTIONS (11)
  - APPENDICECTOMY [None]
  - BONE DISORDER [None]
  - DECUBITUS ULCER [None]
  - DEPRESSION [None]
  - DIABETES MELLITUS [None]
  - GASTRIC DISORDER [None]
  - HEADACHE [None]
  - INTUBATION [None]
  - PAIN [None]
  - PANCREATECTOMY [None]
  - TRACHEOSTOMY [None]
